FAERS Safety Report 8479814-7 (Version None)
Quarter: 2012Q2

REPORT INFORMATION
  Report Type: 
  Country: None (occurrence: None)
  Receive Date: 20120629
  Receipt Date: 20120618
  Transmission Date: 20120825
  Serious: Yes (Other)
  Sender: FDA-Public Use
  Company Number: US-ELI_LILLY_AND_COMPANY-US201203002371

PATIENT
  Sex: Male

DRUGS (3)
  1. HUMALOG [Suspect]
     Indication: TYPE 1 DIABETES MELLITUS
     Dosage: UNK, OTHER
     Route: 058
     Dates: start: 20040101
  2. BENICAR [Concomitant]
     Dosage: 5 MG, UNKNOWN
  3. SIMVASTATIN [Concomitant]
     Dosage: 20 MG, UNKNOWN

REACTIONS (3)
  - ROAD TRAFFIC ACCIDENT [None]
  - HYPOGLYCAEMIA [None]
  - THERAPEUTIC RESPONSE INCREASED [None]
